FAERS Safety Report 6065007-X (Version None)
Quarter: 2009Q1

REPORT INFORMATION
  Report Type: 
  Country: None (occurrence: None)
  Receive Date: 20090204
  Receipt Date: 20090202
  Transmission Date: 20090719
  Serious: Yes (Hospitalization)
  Sender: FDA-Public Use
  Company Number: IT-BRISTOL-MYERS SQUIBB COMPANY-14151310

PATIENT
  Age: 81 Year
  Sex: Male

DRUGS (3)
  1. IRBESARTAN AND HYDROCHLOROTHIAZIDE [Suspect]
     Indication: HYPERTENSION
     Dosage: JAN-2008-12-APR-2008.RESTARTED ON JAN2009.
     Route: 048
     Dates: start: 20080101
  2. ACETAMINOPHEN [Concomitant]
  3. TICLOPIDINA [Concomitant]
     Indication: VENA CAVA FILTER INSERTION
     Route: 048

REACTIONS (4)
  - DIZZINESS [None]
  - LEUKAEMIA [None]
  - LEUKOPENIA [None]
  - NASAL DRYNESS [None]
